FAERS Safety Report 20611926 (Version 3)
Quarter: 2022Q2

REPORT INFORMATION
  Report Type: Spontaneous
  Country: US (occurrence: None)
  Receive Date: 20220318
  Receipt Date: 20220427
  Transmission Date: 20220720
  Serious: Yes (Other)
  Sender: FDA-Public Use
  Company Number: 2022A110108

PATIENT
  Age: 12644 Day
  Sex: Female

DRUGS (2)
  1. EVUSHELD [Suspect]
     Active Substance: CILGAVIMAB\TIXAGEVIMAB
     Dosage: UNKNOWN
     Route: 030
     Dates: start: 20220221
  2. METHOTREXATE [Concomitant]
     Active Substance: METHOTREXATE

REACTIONS (18)
  - Hypotension [Unknown]
  - Peripheral swelling [Not Recovered/Not Resolved]
  - Cystitis interstitial [Unknown]
  - Pollakiuria [Unknown]
  - Contusion [Recovered/Resolved]
  - Sjogren^s syndrome [Unknown]
  - Epistaxis [Unknown]
  - Arthritis [Unknown]
  - Visual impairment [Unknown]
  - Optic nerve disorder [Unknown]
  - Motor dysfunction [Unknown]
  - Alopecia [Unknown]
  - Condition aggravated [Unknown]
  - Disease recurrence [Unknown]
  - Drug intolerance [Unknown]
  - Dysuria [Unknown]
  - Vitreous floaters [Unknown]
  - Product administered at inappropriate site [Unknown]

NARRATIVE: CASE EVENT DATE: 20220221
